FAERS Safety Report 6534446-2 (Version None)
Quarter: 2010Q1

REPORT INFORMATION
  Report Type: 
  Country: None (occurrence: None)
  Receive Date: 20100112
  Receipt Date: 20100104
  Transmission Date: 20100710
  Serious: Yes (Hospitalization)
  Sender: FDA-Public Use
  Company Number: GB-WYE-H08646309

PATIENT
  Age: 9 Year
  Sex: Male

DRUGS (11)
  1. RAPAMUNE [Interacting]
     Indication: PROPHYLAXIS AGAINST TRANSPLANT REJECTION
  2. PREDNISOLONE [Interacting]
     Indication: PROPHYLAXIS AGAINST TRANSPLANT REJECTION
  3. LAMIVUDINE [Suspect]
     Indication: ANTIRETROVIRAL THERAPY
     Dosage: NOT PROVIDED
     Dates: start: 20070330, end: 20070701
  4. ZIDOVUDINE [Suspect]
     Indication: ANTIRETROVIRAL THERAPY
  5. SUSTIVA [Suspect]
     Indication: ANTIRETROVIRAL THERAPY
     Dosage: NOT PROVIDED
     Dates: start: 20070302, end: 20070701
  6. CO-TRIMOXAZOLE [Suspect]
  7. DIDANOSINE [Suspect]
  8. KIVEXA [Suspect]
  9. NELFINAVIR MESYLATE [Suspect]
  10. MYCOPHENOLATE MOFETIL [Interacting]
     Indication: PROPHYLAXIS AGAINST TRANSPLANT REJECTION
  11. ABACAVIR [Suspect]

REACTIONS (9)
  - CHOLESTASIS [None]
  - DISEASE RECURRENCE [None]
  - DRUG INEFFECTIVE [None]
  - DRUG INTERACTION [None]
  - HIV INFECTION [None]
  - HYPERLIPIDAEMIA [None]
  - HYPERTENSION [None]
  - MYOPATHY [None]
  - RENAL IMPAIRMENT [None]
